FAERS Safety Report 16467112 (Version 1)
Quarter: 2019Q2

REPORT INFORMATION
  Report Type: Spontaneous
  Country: US (occurrence: US)
  Receive Date: 20190624
  Receipt Date: 20190624
  Transmission Date: 20190711
  Serious: Yes (Hospitalization)
  Sender: FDA-Public Use
  Company Number: US-ROCHE-2341618

PATIENT
  Age: 10 Year
  Sex: Male

DRUGS (22)
  1. COLECALCIFEROL [Concomitant]
     Active Substance: CHOLECALCIFEROL
  2. SODIUM ASCORBATE [Concomitant]
     Active Substance: SODIUM ASCORBATE
  3. ZINC SULFATE [Concomitant]
     Active Substance: ZINC SULFATE\ZINC SULFATE ANHYDROUS
  4. TOCOPHEROL [Concomitant]
     Active Substance: TOCOPHEROL
  5. BETHKIS [Suspect]
     Active Substance: TOBRAMYCIN
     Indication: CYSTIC FIBROSIS
     Dosage: 28DAYS ON AND OFF; ONGOING: UNKNOWN
     Route: 065
     Dates: start: 20161005
  6. MULTIVITAMINS WITH MINERALS [UMBRELLA TERM] [Concomitant]
  7. NICOTINAMIDE [Concomitant]
     Active Substance: NIACINAMIDE
  8. RIBOFLAVIN [Concomitant]
     Active Substance: RIBOFLAVIN
  9. CYANOCOBALAMIN. [Concomitant]
     Active Substance: CYANOCOBALAMIN
  10. PHYTOMENADIONE [Concomitant]
     Active Substance: PHYTONADIONE
  11. PULMOZYME [Suspect]
     Active Substance: DORNASE ALFA
     Indication: CYSTIC FIBROSIS
     Dosage: ONGOING: UNKNOWN?1 VIAL VIA NEBULIZER DAULY
     Route: 055
     Dates: start: 20150403
  12. BETACAROTENE [Concomitant]
     Active Substance: .BETA.-CAROTENE
  13. BIOTIN [Concomitant]
     Active Substance: BIOTIN
  14. CALCIUM PANTOTHENATE [Concomitant]
     Active Substance: CALCIUM PANTOTHENATE
  15. AZTREONAM LYSINE [Suspect]
     Active Substance: AZTREONAM LYSINE
     Indication: CYSTIC FIBROSIS
     Dosage: 1 VIA TID; 28DAYS ON AND OFF; ONGOING: UNKNOWN
     Route: 055
  16. THIAMINE MONONITRATE [Concomitant]
     Active Substance: THIAMINE MONONITRATE
  17. UBIDECARENONE [Concomitant]
     Active Substance: UBIDECARENONE
  18. DL-SELENOMETHIONINE [Concomitant]
  19. PYRIDOXINE HYDROCHLORIDE. [Concomitant]
     Active Substance: PYRIDOXINE HYDROCHLORIDE
  20. ALBUTEROL [SALBUTAMOL] [Suspect]
     Active Substance: ALBUTEROL
     Indication: CYSTIC FIBROSIS
     Dosage: 1 VID BID; AS NEEDED; ONGOING: UNKNOWN
     Route: 055
     Dates: start: 20150403
  21. FOLIC ACID. [Concomitant]
     Active Substance: FOLIC ACID
  22. PREVACID [Concomitant]
     Active Substance: LANSOPRAZOLE

REACTIONS (1)
  - Cystic fibrosis respiratory infection suppression [Unknown]
